FAERS Safety Report 7875459-8 (Version None)
Quarter: 2011Q4

REPORT INFORMATION
  Report Type: 
  Country: None (occurrence: None)
  Receive Date: 20111031
  Receipt Date: 20111024
  Transmission Date: 20120403
  Serious: Yes (Other)
  Sender: FDA-Public Use
  Company Number: PHEH2011US07689

PATIENT
  Age: 4 Year
  Sex: Female
  Weight: 17.687 kg

DRUGS (2)
  1. TOBI [Suspect]
     Indication: CYSTIC FIBROSIS
     Dosage: 300 MG, TWICE DAILY VIA NEBULIZER 28 DAYS ON AND 28 DAYS OFF
     Dates: start: 20110105
  2. PULMOZYME [Concomitant]

REACTIONS (2)
  - PNEUMONIA [None]
  - UPPER RESPIRATORY TRACT INFECTION [None]
